FAERS Safety Report 5848761-9 (Version None)
Quarter: 2008Q3

REPORT INFORMATION
  Report Type: 
  Country: None (occurrence: None)
  Receive Date: 20080818
  Receipt Date: 20080807
  Transmission Date: 20090109
  Serious: Yes (Other)
  Sender: FDA-Public Use
  Company Number: PH-BOEHRINGER INGELHEIM GMBH, GERMANY-2008-DE-04705GL

PATIENT
  Age: 42 Year
  Sex: Male

DRUGS (3)
  1. TELMISARTAN [Suspect]
     Indication: HYPERTENSION
     Route: 048
     Dates: start: 20070101, end: 20080715
  2. DULOXETINE [Concomitant]
     Dates: start: 20070101
  3. ARIPIPRAZOLE [Concomitant]
     Dates: start: 20070101

REACTIONS (5)
  - ANGIOEDEMA [None]
  - BLOOD GLUCOSE [None]
  - HEPATIC STEATOSIS [None]
  - LIPIDS INCREASED [None]
  - URINARY TRACT INFECTION [None]
